FAERS Safety Report 8805844 (Version 1)
Quarter: 2012Q4

REPORT INFORMATION
  Report Type: Spontaneous
  Country: CL (occurrence: None)
  Receive Date: 20120917
  Receipt Date: 20120917
  Transmission Date: 20130627
  Serious: Yes (Hospitalization)
  Sender: FDA-Public Use
  Company Number: DKLU1084572

PATIENT
  Age: 23 Year
  Sex: Female

DRUGS (6)
  1. ONFI [Suspect]
     Indication: STATUS EPILEPTICUS
  2. VALPROIC ACID [Suspect]
     Indication: STATUS EPILEPTICUS
  3. LEVETIRACETAM [Suspect]
     Indication: STATUS EPILEPTICUS
  4. MIDAZOLAM [Suspect]
     Indication: STATUS EPILEPTICUS
  5. TOPIRAMATE [Suspect]
     Indication: STATUS EPILEPTICUS
  6. PROPOFOL [Concomitant]

REACTIONS (2)
  - Treatment failure [None]
  - Acidosis hyperchloraemic [None]
